FAERS Safety Report 24052011 (Version 2)
Quarter: 2024Q3

REPORT INFORMATION
  Report Type: Spontaneous
  Country: CN (occurrence: CN)
  Receive Date: 20240704
  Receipt Date: 20240708
  Transmission Date: 20241016
  Serious: Yes (Other)
  Sender: TAKEDA
  Company Number: CN-TAKEDA-2024TUS065770

PATIENT
  Age: 59 Year
  Sex: Male

DRUGS (1)
  1. FEBUXOSTAT [Suspect]
     Active Substance: FEBUXOSTAT
     Indication: Product used for unknown indication
     Dosage: UNK
     Route: 065
     Dates: start: 20221011, end: 20230330

REACTIONS (8)
  - Liver injury [Recovered/Resolved]
  - Neutropenia [Recovered/Resolved]
  - Dyslipidaemia [Not Recovered/Not Resolved]
  - Tri-iodothyronine decreased [Not Recovered/Not Resolved]
  - Gouty arthritis [Recovered/Resolved]
  - Anaemia [Not Recovered/Not Resolved]
  - Blood thyroid stimulating hormone increased [Not Recovered/Not Resolved]
  - Blood creatinine increased [Recovered/Resolved]

NARRATIVE: CASE EVENT DATE: 20221110
